FAERS Safety Report 15407853 (Version 3)
Quarter: 2018Q4

REPORT INFORMATION
  Report Type: Report from Study
  Country: DE (occurrence: DE)
  Receive Date: 20180920
  Receipt Date: 20181004
  Transmission Date: 20190204
  Serious: Yes (Hospitalization)
  Sender: FDA-Public Use
  Company Number: DE-CELGENEUS-DEU-20180905251

PATIENT
  Age: 77 Year
  Sex: Male
  Weight: 69 kg

DRUGS (11)
  1. JAKAVI [Concomitant]
     Active Substance: RUXOLITINIB
     Indication: POLYCYTHAEMIA VERA
     Route: 048
     Dates: start: 20180901
  2. DEXAMETHASONE. [Suspect]
     Active Substance: DEXAMETHASONE
     Indication: PLASMA CELL MYELOMA
     Route: 065
     Dates: start: 20180324
  3. LIXIANA [Concomitant]
     Active Substance: EDOXABAN TOSYLATE
     Indication: PROPHYLAXIS
     Route: 048
     Dates: start: 20180504
  4. OMEPRAZOLE. [Concomitant]
     Active Substance: OMEPRAZOLE
     Indication: PROPHYLAXIS
     Route: 048
     Dates: start: 20180322
  5. REVLIMID [Suspect]
     Active Substance: LENALIDOMIDE
     Route: 048
     Dates: start: 20180818, end: 20180831
  6. JAKAVI [Concomitant]
     Active Substance: RUXOLITINIB
     Dosage: 10 MILLIGRAM
     Route: 048
     Dates: start: 20140408, end: 20180831
  7. REVLIMID [Suspect]
     Active Substance: LENALIDOMIDE
     Indication: PLASMA CELL MYELOMA
     Route: 048
     Dates: start: 20180324, end: 20180325
  8. DEXAMETHASONE. [Suspect]
     Active Substance: DEXAMETHASONE
     Route: 065
     Dates: start: 20180908
  9. NOVAMINSULFON RATIO [Concomitant]
     Indication: MYELOFIBROSIS
     Route: 048
     Dates: start: 20180307
  10. ZOLEDRONATE [Concomitant]
     Active Substance: ZOLEDRONIC ACID
     Indication: PROPHYLAXIS
     Route: 041
     Dates: start: 20180322
  11. TARGIN [Concomitant]
     Active Substance: NALOXONE HYDROCHLORIDE\OXYCODONE HYDROCHLORIDE
     Indication: MYELOFIBROSIS
     Route: 048
     Dates: start: 20180307

REACTIONS (3)
  - Back pain [Not Recovered/Not Resolved]
  - Haemorrhoidal haemorrhage [Recovered/Resolved]
  - Haematoma [Recovered/Resolved]

NARRATIVE: CASE EVENT DATE: 20180830
